FAERS Safety Report 6094316-3 (Version None)
Quarter: 2009Q1

REPORT INFORMATION
  Report Type: 
  Country: None (occurrence: None)
  Receive Date: 20090226
  Receipt Date: 20090219
  Transmission Date: 20090719
  Serious: Yes (Other)
  Sender: FDA-Public Use
  Company Number: GB-ABBOTT-09P-167-0558417-00

PATIENT
  Age: 49 Year
  Sex: Female
  Weight: 100 kg

DRUGS (1)
  1. SIBUTRAMINE [Suspect]
     Indication: OBESITY
     Dates: start: 20080907, end: 20090210

REACTIONS (3)
  - ATRIAL FLUTTER [None]
  - DYSPNOEA [None]
  - PALPITATIONS [None]
